FAERS Safety Report 20226427 (Version 1)
Quarter: 2021Q4

REPORT INFORMATION
  Report Type: Spontaneous
  Country: DE (occurrence: DE)
  Receive Date: 20211224
  Receipt Date: 20211224
  Transmission Date: 20220303
  Serious: Yes (Hospitalization)
  Sender: FDA-Public Use
  Company Number: DE-ADRED-04964-03

PATIENT
  Age: 82 Year
  Sex: Female

DRUGS (10)
  1. EPLERENONE [Suspect]
     Active Substance: EPLERENONE
     Dosage: 25 MG, 1X/DAY
     Route: 048
  2. APIXABAN [Suspect]
     Active Substance: APIXABAN
     Dosage: 2.5 MG, 2X/DAY, TABLET
     Route: 048
  3. BISOPROLOL [Suspect]
     Active Substance: BISOPROLOL
     Dosage: 2.5 MG, 2X/DAY, RETARD TABLETS
     Route: 048
  4. TORSEMIDE [Suspect]
     Active Substance: TORSEMIDE
     Dosage: 200 MG, 0.25-0-0-0, TABLET
     Route: 048
  5. PANTOPRAZOLE [Concomitant]
     Active Substance: PANTOPRAZOLE
     Dosage: 40 MG, 1X/DAY
     Route: 048
  6. METAMIZOLE [Concomitant]
     Active Substance: METAMIZOLE
     Dosage: 500 MG, AS NEEDED, TABLETS
     Route: 048
  7. KALINOR-RETARD P [Concomitant]
     Dosage: 600 MG, 1X/DAY
     Route: 048
  8. MCP AL 10 [Concomitant]
     Dosage: 10 MG, AS NEEDED, TABLET
     Route: 048
  9. PIPAMPERONE HYDROCHLORIDE [Concomitant]
     Active Substance: PIPAMPERONE HYDROCHLORIDE
     Dosage: 20 MG, 1X/DAY, TABLET
     Route: 048
  10. ATORVASTATIN [Concomitant]
     Active Substance: ATORVASTATIN
     Dosage: 20 MG, 1X/DAY
     Route: 048

REACTIONS (4)
  - Fatigue [Unknown]
  - Haematochezia [Unknown]
  - Weight decreased [Unknown]
  - General physical health deterioration [Unknown]
